FAERS Safety Report 20030449 (Version 1)
Quarter: 2021Q4

REPORT INFORMATION
  Report Type: Report from Study
  Country: US (occurrence: US)
  Receive Date: 20211103
  Receipt Date: 20211103
  Transmission Date: 20220303
  Serious: Yes (Other)
  Sender: FDA-Public Use
  Company Number: US-UCBSA-2021048390

PATIENT
  Sex: Female

DRUGS (1)
  1. CERTOLIZUMAB PEGOL [Suspect]
     Active Substance: CERTOLIZUMAB PEGOL
     Indication: Psoriasis
     Dosage: 400 MILLIGRAM, EV 2 WEEKS(QOW)
     Dates: start: 202107

REACTIONS (5)
  - Gait disturbance [Not Recovered/Not Resolved]
  - Pain [Unknown]
  - Therapy interrupted [Unknown]
  - Product distribution issue [Unknown]
  - Product availability issue [Unknown]
